FAERS Safety Report 22096153 (Version 7)
Quarter: 2024Q4

REPORT INFORMATION
  Report Type: Report from Study
  Country: US (occurrence: US)
  Receive Date: 20230315
  Receipt Date: 20241009
  Transmission Date: 20250115
  Serious: Yes (Other)
  Sender: NOVARTIS
  Company Number: US-002147023-NVSC2023US053439

PATIENT
  Sex: Female

DRUGS (2)
  1. KESIMPTA [Suspect]
     Active Substance: OFATUMUMAB
     Indication: Product used for unknown indication
     Dosage: UNK
     Route: 065
  2. GILENYA [Suspect]
     Active Substance: FINGOLIMOD HYDROCHLORIDE
     Indication: Product used for unknown indication
     Dosage: UNK
     Route: 065

REACTIONS (12)
  - Tricuspid valve incompetence [Unknown]
  - Multiple sclerosis relapse [Recovered/Resolved]
  - Thrombosis [Unknown]
  - Gait disturbance [Unknown]
  - Pyrexia [Unknown]
  - Hyperhidrosis [Unknown]
  - Headache [Unknown]
  - Pain in extremity [Unknown]
  - Muscular weakness [Unknown]
  - Tremor [Unknown]
  - Chest pain [Unknown]
  - COVID-19 [Unknown]
